FAERS Safety Report 25853213 (Version 1)
Quarter: 2025Q3

REPORT INFORMATION
  Report Type: Spontaneous
  Country: US (occurrence: None)
  Receive Date: 20250925
  Receipt Date: 20250925
  Transmission Date: 20251021
  Serious: Yes (Other)
  Sender: FDA-CTU
  Company Number: None

PATIENT
  Age: 55 Year
  Sex: Female
  Weight: 88.9 kg

DRUGS (2)
  1. DOCETAXEL [Suspect]
     Active Substance: DOCETAXEL
     Indication: Breast cancer
     Route: 042
     Dates: start: 20250903
  2. CYCLOPHOSPHAMIDE [Concomitant]
     Active Substance: CYCLOPHOSPHAMIDE
     Dates: start: 20250812

REACTIONS (2)
  - Infusion site injury [None]
  - Chemical burn [None]

NARRATIVE: CASE EVENT DATE: 20250923
